FAERS Safety Report 20851359 (Version 1)
Quarter: 2022Q2

REPORT INFORMATION
  Report Type: Spontaneous
  Country: US (occurrence: US)
  Receive Date: 20220519
  Receipt Date: 20220519
  Transmission Date: 20220720
  Serious: Yes (Other)
  Sender: FDA-Public Use
  Company Number: US-BRISTOL-MYERS SQUIBB COMPANY-2022-040337

PATIENT
  Age: 75 Year
  Sex: Female
  Weight: 66.224 kg

DRUGS (1)
  1. REVLIMID [Suspect]
     Active Substance: LENALIDOMIDE
     Indication: Plasma cell myeloma
     Dosage: DAILY 14D ON, 7D OFF
     Route: 048
     Dates: start: 20220223

REACTIONS (1)
  - Thrombosis [Recovering/Resolving]
